FAERS Safety Report 17917052 (Version 1)
Quarter: 2020Q2

REPORT INFORMATION
  Report Type: Spontaneous
  Country: CA (occurrence: CA)
  Receive Date: 20200619
  Receipt Date: 20200619
  Transmission Date: 20200714
  Serious: Yes (Hospitalization, Other)
  Sender: FDA-Public Use
  Company Number: CA-TEVA-2020-CA-1789746

PATIENT
  Age: 12 Year
  Sex: Female

DRUGS (1)
  1. ETHINYLESTRADIOL W/LEVONORGESTREL [Suspect]
     Active Substance: ETHINYL ESTRADIOL\LEVONORGESTREL
     Indication: MENORRHAGIA
     Route: 048

REACTIONS (5)
  - Vaginal haemorrhage [Unknown]
  - Off label use [Unknown]
  - Uterine mass [Unknown]
  - Product use in unapproved indication [Unknown]
  - Decidual cast [Unknown]
